FAERS Safety Report 26137582 (Version 1)
Quarter: 2025Q4

REPORT INFORMATION
  Report Type: Spontaneous
  Country: CH (occurrence: CH)
  Receive Date: 20251209
  Receipt Date: 20251209
  Transmission Date: 20260118
  Serious: No
  Sender: JOHNSON AND JOHNSON
  Company Number: CH-JNJFOC-20251203671

PATIENT
  Sex: Female

DRUGS (1)
  1. SIMPONI [Suspect]
     Active Substance: GOLIMUMAB
     Indication: Product used for unknown indication
     Dosage: STRENGTH:  50.00 MG / 0.50 ML
     Route: 058

REACTIONS (3)
  - Device defective [Unknown]
  - Accidental exposure to product [Unknown]
  - Product dose omission issue [Unknown]
